FAERS Safety Report 15829446 (Version 1)
Quarter: 2019Q1

REPORT INFORMATION
  Report Type: Spontaneous
  Country: US (occurrence: US)
  Receive Date: 20190115
  Receipt Date: 20190115
  Transmission Date: 20190417
  Serious: No
  Sender: FDA-Public Use
  Company Number: US-PERRIGO-18US006698

PATIENT
  Age: 56 Year
  Sex: Male
  Weight: 74.83 kg

DRUGS (1)
  1. TRETINOIN. [Suspect]
     Active Substance: TRETINOIN
     Indication: ROSACEA
     Dosage: PEA SIZED AMOUNT, 2 TO 3 TIMES WEEKLY
     Route: 061
     Dates: start: 20180611

REACTIONS (3)
  - Application site pain [Unknown]
  - Application site irritation [Unknown]
  - Off label use [Unknown]

NARRATIVE: CASE EVENT DATE: 2018
